FAERS Safety Report 5317912-7 (Version None)
Quarter: 2007Q2

REPORT INFORMATION
  Report Type: 
  Country: None (occurrence: None)
  Receive Date: 20070507
  Receipt Date: 20070425
  Transmission Date: 20071010
  Serious: Yes (Hospitalization)
  Sender: FDA-Public Use
  Company Number: B0468741A

PATIENT
  Age: 43 Year
  Sex: Male
  Weight: 82 kg

DRUGS (6)
  1. COMBIVIR [Suspect]
     Indication: HIV INFECTION
     Dosage: 2UNIT PER DAY
     Route: 048
     Dates: start: 20040826, end: 20070323
  2. NORVIR [Suspect]
     Indication: HIV INFECTION
     Dosage: 100MG PER DAY
     Route: 048
     Dates: start: 20040826
  3. REYATAZ [Suspect]
     Indication: HIV INFECTION
     Dosage: 300MG PER DAY
     Route: 048
     Dates: start: 20040826
  4. AMOXICILLIN [Suspect]
     Route: 065
     Dates: start: 20070316, end: 20070323
  5. REBETOL [Concomitant]
     Indication: HEPATITIS C
     Dosage: 1000MG PER DAY
     Route: 058
     Dates: start: 20070228, end: 20070309
  6. PEGASYS [Concomitant]
     Indication: HEPATITIS C
     Dosage: 180MCG PER DAY
     Route: 058
     Dates: start: 20070228, end: 20070309

REACTIONS (10)
  - ACTIVATED PARTIAL THROMBOPLASTIN TIME PROLONGED [None]
  - ASCITES [None]
  - BLOOD ALKALINE PHOSPHATASE INCREASED [None]
  - BLOOD BILIRUBIN INCREASED [None]
  - HEPATIC CIRRHOSIS [None]
  - MACROCYTOSIS [None]
  - NEUTROPENIA [None]
  - PNEUMOCOCCAL SEPSIS [None]
  - PROTHROMBIN LEVEL DECREASED [None]
  - TRANSAMINASES INCREASED [None]
